FAERS Safety Report 7816760-3 (Version None)
Quarter: 2011Q4

REPORT INFORMATION
  Report Type: 
  Country: None (occurrence: None)
  Receive Date: 20111017
  Receipt Date: 20111004
  Transmission Date: 20120403
  Serious: Yes (Hospitalization, Other)
  Sender: FDA-Public Use
  Company Number: US-ACTELION-A-NJ2011-53499

PATIENT

DRUGS (2)
  1. TRACLEER [Suspect]
     Indication: PULMONARY ARTERIAL HYPERTENSION
     Dosage: UNK
     Route: 048
     Dates: start: 20081028
  2. CALCIUM CHANNEL BLOCKERS [Concomitant]

REACTIONS (3)
  - MYOCARDIAL INFARCTION [None]
  - DIALYSIS [None]
  - FLUID RETENTION [None]
